FAERS Safety Report 21322957 (Version 1)
Quarter: 2022Q3

REPORT INFORMATION
  Report Type: Spontaneous
  Country: CA (occurrence: CA)
  Receive Date: 20220912
  Receipt Date: 20220912
  Transmission Date: 20221027
  Serious: Yes (Hospitalization, Other)
  Sender: FDA-Public Use
  Company Number: CA-JNJFOC-20220919558

PATIENT
  Age: 44 Year
  Sex: Male
  Weight: 85 kg

DRUGS (3)
  1. REMICADE [Suspect]
     Active Substance: INFLIXIMAB
     Indication: Colitis ulcerative
     Route: 041
  2. METHOTREXATE [Concomitant]
     Active Substance: METHOTREXATE
     Route: 048
  3. TESTOSTERONE [Concomitant]
     Active Substance: TESTOSTERONE
     Route: 065

REACTIONS (4)
  - Groin abscess [Not Recovered/Not Resolved]
  - Condition aggravated [Not Recovered/Not Resolved]
  - Inappropriate schedule of product administration [Not Recovered/Not Resolved]
  - Off label use [Not Recovered/Not Resolved]
